FAERS Safety Report 20667107 (Version 9)
Quarter: 2022Q3

REPORT INFORMATION
  Report Type: Report from Study
  Country: MX (occurrence: MX)
  Receive Date: 20220404
  Receipt Date: 20220708
  Transmission Date: 20221027
  Serious: Yes (Other)
  Sender: FDA-Public Use
  Company Number: MX-NOVARTISPH-NVSC2022MX070962

PATIENT
  Age: 67 Year
  Sex: Female
  Weight: 59 kg

DRUGS (19)
  1. ELTROMBOPAG OLAMINE [Suspect]
     Active Substance: ELTROMBOPAG OLAMINE
     Indication: Platelet count decreased
     Dosage: 1 DOSAGE FORM, QD (25 MG  TABLET) (EVERY 72 HOURS)
     Route: 048
     Dates: start: 20220119
  2. ELTROMBOPAG OLAMINE [Suspect]
     Active Substance: ELTROMBOPAG OLAMINE
     Indication: Scleroderma
     Dosage: 1 DF 25 MG QD
     Route: 048
     Dates: start: 20220119
  3. ELTROMBOPAG OLAMINE [Suspect]
     Active Substance: ELTROMBOPAG OLAMINE
     Indication: Systemic lupus erythematosus
     Dosage: 1 DOSAGE FORM (25 MG), QD
     Route: 048
     Dates: start: 202201, end: 202205
  4. ELTROMBOPAG OLAMINE [Suspect]
     Active Substance: ELTROMBOPAG OLAMINE
     Indication: Sjogren^s syndrome
     Dosage: 1 DOSAGE FORM, QD (25 MG)
     Route: 048
     Dates: start: 202201, end: 202202
  5. ELTROMBOPAG OLAMINE [Suspect]
     Active Substance: ELTROMBOPAG OLAMINE
     Indication: Platelet count increased
     Dosage: 1 DOSAGE FORM, Q72H (25 MG)
     Route: 048
     Dates: start: 20220119
  6. ELTROMBOPAG OLAMINE [Suspect]
     Active Substance: ELTROMBOPAG OLAMINE
     Dosage: 1 (25 MG) (1 TABLET DAILY FOR 3 WEEKS)
     Route: 048
     Dates: start: 202201, end: 202205
  7. ELTROMBOPAG OLAMINE [Suspect]
     Active Substance: ELTROMBOPAG OLAMINE
     Dosage: UNK
     Route: 065
     Dates: start: 202202, end: 202205
  8. ELTROMBOPAG OLAMINE [Suspect]
     Active Substance: ELTROMBOPAG OLAMINE
     Dosage: 1 DF 25 MG EVERY THIRD DAY
     Route: 048
     Dates: end: 20220519
  9. ELTROMBOPAG OLAMINE [Suspect]
     Active Substance: ELTROMBOPAG OLAMINE
     Dosage: UNK (1 OF 25 MG), EVERY THIRD DAY
     Route: 048
     Dates: start: 202202
  10. ELTROMBOPAG OLAMINE [Suspect]
     Active Substance: ELTROMBOPAG OLAMINE
     Dosage: 1 DOSAGE FORM, QOD (25 MG TABLET)
     Route: 048
     Dates: start: 202202, end: 202203
  11. ELTROMBOPAG OLAMINE [Suspect]
     Active Substance: ELTROMBOPAG OLAMINE
     Dosage: 1 DOSAGE FORM, QD (25 MG TABLET)
     Route: 048
  12. ELTROMBOPAG OLAMINE [Suspect]
     Active Substance: ELTROMBOPAG OLAMINE
     Dosage: 1 DOSAGE FORM (25 MG) (EVERY THIRD DAY)
     Route: 065
  13. ELTROMBOPAG OLAMINE [Suspect]
     Active Substance: ELTROMBOPAG OLAMINE
     Dosage: 25 MG
     Route: 065
  14. EUTHYROX [Concomitant]
     Active Substance: LEVOTHYROXINE SODIUM
     Indication: Hypothyroidism
     Dosage: 1 DOSAGE FORM, QD
     Route: 048
     Dates: start: 2007
  15. CORPOTASIN CL [Concomitant]
     Indication: Product used for unknown indication
     Dosage: 1 DOSAGE FORM, BID
     Route: 048
     Dates: start: 20220311
  16. IMURAN [Concomitant]
     Active Substance: AZATHIOPRINE
     Indication: Product used for unknown indication
     Dosage: 1 DOSAGE FORM 50 MG, QD
     Route: 048
     Dates: start: 20220311
  17. OMEPRAZOLE [Concomitant]
     Active Substance: OMEPRAZOLE
     Indication: Product used for unknown indication
     Dosage: 1 DOSAGE FORM,20 MG QD
     Route: 048
     Dates: start: 20220311
  18. DABIGATRAN ETEXILATE MESYLATE [Concomitant]
     Active Substance: DABIGATRAN ETEXILATE MESYLATE
     Indication: Anticoagulant therapy
     Dosage: UNK
     Route: 065
  19. PANTOPRAZOLE [Concomitant]
     Active Substance: PANTOPRAZOLE
     Indication: Abdominal discomfort
     Dosage: 1 DOSAGE FORM (40 MG), QD
     Route: 048
     Dates: start: 20220528

REACTIONS (20)
  - Scleroderma [Not Recovered/Not Resolved]
  - Sjogren^s syndrome [Not Recovered/Not Resolved]
  - Systemic lupus erythematosus [Not Recovered/Not Resolved]
  - Liver injury [Not Recovered/Not Resolved]
  - Femur fracture [Unknown]
  - Fall [Recovering/Resolving]
  - Overlap syndrome [Not Recovered/Not Resolved]
  - Platelet count decreased [Unknown]
  - Contusion [Recovering/Resolving]
  - Alopecia [Not Recovered/Not Resolved]
  - Feeling abnormal [Unknown]
  - Vision blurred [Unknown]
  - Urine output decreased [Unknown]
  - Renal disorder [Unknown]
  - Swelling face [Not Recovered/Not Resolved]
  - Pain [Unknown]
  - Pain in extremity [Recovering/Resolving]
  - Muscle spasms [Unknown]
  - Asthenia [Unknown]
  - Product use in unapproved indication [Unknown]

NARRATIVE: CASE EVENT DATE: 20220101
